FAERS Safety Report 8202755-7 (Version None)
Quarter: 2012Q1

REPORT INFORMATION
  Report Type: 
  Country: None (occurrence: None)
  Receive Date: 20120312
  Receipt Date: 20120312
  Transmission Date: 20120608
  Serious: No
  Sender: FDA-Public Use
  Company Number: None

PATIENT
  Sex: Female
  Weight: 76.657 kg

DRUGS (11)
  1. BUMEX [Concomitant]
  2. ACETAMINOPHEN [Concomitant]
  3. FOLIC ACID [Concomitant]
  4. MEROPENEM [Concomitant]
     Dosage: 500MG
     Route: 040
     Dates: start: 20120206, end: 20120218
  5. ISOSORBIDE DINITRATE [Concomitant]
  6. COREG [Concomitant]
  7. MEROPENEM [Suspect]
     Indication: PNEUMONIA
     Dosage: 500MG
     Route: 040
     Dates: start: 20120206, end: 20120218
  8. HYDRALAZINE HCL [Concomitant]
  9. IPATROPIUM/ALBUTEROL [Concomitant]
  10. FERROUS SULFATE TAB [Concomitant]
  11. DOCUSATE SODIUM [Concomitant]

REACTIONS (1)
  - PLATELET COUNT DECREASED [None]
